FAERS Safety Report 21396608 (Version 1)
Quarter: 2022Q3

REPORT INFORMATION
  Report Type: Spontaneous
  Country: US (occurrence: None)
  Receive Date: 20220929
  Receipt Date: 20220929
  Transmission Date: 20221027
  Serious: No
  Sender: FDA-Public Use
  Company Number: None

PATIENT
  Sex: Female
  Weight: 55.6 kg

DRUGS (8)
  1. CYCLOPHOSPHAMIDE [Suspect]
     Active Substance: CYCLOPHOSPHAMIDE
     Dates: end: 20220903
  2. CYTARABINE [Suspect]
     Active Substance: CYTARABINE
     Dates: end: 20220831
  3. SPRYCEL [Suspect]
     Active Substance: DASATINIB
     Dates: end: 20220831
  4. DEXAMETHASONE [Suspect]
     Active Substance: DEXAMETHASONE
     Dates: end: 20220913
  5. DOXORUBICIN HYDROCHLORIDE [Suspect]
     Active Substance: DOXORUBICIN HYDROCHLORIDE
     Dates: end: 20220903
  6. MESNA [Suspect]
     Active Substance: MESNA
     Dates: end: 20220902
  7. METHOTREXATE [Suspect]
     Active Substance: METHOTREXATE
     Dates: end: 20220907
  8. VINCRISTINE SULFATE [Suspect]
     Active Substance: VINCRISTINE SULFATE
     Dates: end: 20220910

REACTIONS (3)
  - Hyperglycaemia [None]
  - Anaemia [None]
  - Platelet count decreased [None]

NARRATIVE: CASE EVENT DATE: 20220831
